FAERS Safety Report 8583715-3 (Version None)
Quarter: 2012Q3

REPORT INFORMATION
  Report Type: 
  Country: None (occurrence: None)
  Receive Date: 20120809
  Receipt Date: 20120711
  Transmission Date: 20120928
  Serious: Yes (Death, Disabling, Other)
  Sender: FDA-Public Use
  Company Number: FR-MSD-2011SP049831

PATIENT
  Sex: Male
  Weight: 61 kg

DRUGS (13)
  1. BLINDED POST TRIAL THERAPY [Suspect]
     Indication: HEPATITIS C
     Dosage: 800 MG, QD
     Dates: start: 20071018, end: 20100722
  2. PEG-INTRON [Suspect]
     Indication: HEPATITIS C
     Dosage: 30 ?G, QW
     Dates: start: 20071018, end: 20100722
  3. PEGINTERFERON ALFA-2B [Suspect]
     Indication: HEPATITIS C
     Dosage: 800 MG, QD
     Dates: start: 20071018, end: 20100722
  4. PEGINTERFERON ALFA-2B [Suspect]
     Dosage: 800 MG, QD
     Dates: start: 20071018, end: 20100722
  5. PLACEBO [Suspect]
     Indication: HEPATITIS C
     Dosage: 800 MG, QD
     Dates: start: 20071018, end: 20100722
  6. BLINDED POST TRIAL THERAPY [Suspect]
     Dosage: 800 MG, QD
     Dates: start: 20071018, end: 20100722
  7. RIBAVIRIN [Suspect]
     Dosage: 800 MG, QD
     Dates: start: 20071018, end: 20100722
  8. BLINDED PRE TRIAL THERAPY [Suspect]
     Indication: HEPATITIS C
     Dosage: 800 MG, QD
     Dates: start: 20071018, end: 20100722
  9. BLINDED PRE TRIAL THERAPY [Suspect]
     Dosage: 800 MG, QD
     Dates: start: 20071018, end: 20100722
  10. BLINDED PRE TRIAL THERAPY [Suspect]
     Dosage: 800 MG, QD
     Dates: start: 20071018, end: 20100722
  11. RIBAVIRIN [Suspect]
     Indication: HEPATITIS C
     Dosage: 800 MG, QD
     Dates: start: 20071018, end: 20100722
  12. PLACEBO [Suspect]
     Dosage: 800 MG, QD
     Dates: start: 20071018, end: 20100722
  13. BLINDED POST TRIAL THERAPY [Suspect]
     Dosage: 800 MG, QD
     Dates: start: 20071018, end: 20100722

REACTIONS (1)
  - TOOTH DISORDER [None]
